FAERS Safety Report 9459602 (Version 1)
Quarter: 2013Q3

REPORT INFORMATION
  Report Type: Spontaneous
  Country: US (occurrence: US)
  Receive Date: 20130815
  Receipt Date: 20130815
  Transmission Date: 20140515
  Serious: No
  Sender: FDA-Public Use
  Company Number: US-COVIDIEN/TYCO HEALTHCARE/MALLINCKRODT-T201304067

PATIENT
  Sex: Female
  Weight: 51.25 kg

DRUGS (4)
  1. FENTANYL TRANSDERMAL SYSTEM [Suspect]
     Indication: PAIN
     Dosage: 100 MCG/HR Q 48 HOURS
     Route: 062
     Dates: start: 2013
  2. POTASSIUM [Concomitant]
     Dosage: UNK
  3. LASIX                              /00032601/ [Concomitant]
     Dosage: UNK
  4. SUBSYS SPRAY [Concomitant]
     Indication: BREAKTHROUGH PAIN
     Dosage: 800 MCG

REACTIONS (8)
  - Panic attack [Recovered/Resolved]
  - Application site erythema [Recovered/Resolved]
  - Application site warmth [Recovered/Resolved]
  - Incorrect drug administration duration [Recovered/Resolved]
  - Drug administered at inappropriate site [Recovered/Resolved]
  - Wrong technique in drug usage process [Recovered/Resolved]
  - Drug ineffective [Unknown]
  - Product adhesion issue [Recovered/Resolved]
